FAERS Safety Report 15908382 (Version 1)
Quarter: 2019Q1

REPORT INFORMATION
  Report Type: Spontaneous
  Country: US (occurrence: US)
  Receive Date: 20190204
  Receipt Date: 20190204
  Transmission Date: 20190417
  Serious: No
  Sender: FDA-Public Use
  Company Number: US-ABBVIE-18K-163-2260383-00

PATIENT
  Sex: Female

DRUGS (1)
  1. HUMIRA [Suspect]
     Active Substance: ADALIMUMAB
     Indication: HIDRADENITIS
     Route: 058

REACTIONS (9)
  - Wound drainage [Unknown]
  - Wound complication [Recovering/Resolving]
  - Injection site pain [Unknown]
  - Skin swelling [Recovering/Resolving]
  - Drug effect incomplete [Unknown]
  - Fatigue [Unknown]
  - Rhinorrhoea [Unknown]
  - Wound [Not Recovered/Not Resolved]
  - Pain in extremity [Recovered/Resolved]

NARRATIVE: CASE EVENT DATE: 201804
